FAERS Safety Report 8044107-9 (Version None)
Quarter: 2012Q1

REPORT INFORMATION
  Report Type: 
  Country: None (occurrence: None)
  Receive Date: 20120113
  Receipt Date: 20120104
  Transmission Date: 20120608
  Serious: Yes (Life-Threatening)
  Sender: FDA-Public Use
  Company Number: GB-PURDUE-GBR-2012-0009357

PATIENT
  Age: 61 Year
  Sex: Male

DRUGS (8)
  1. MORPHINE SULFATE [Suspect]
     Indication: PRODUCT USED FOR UNKNOWN INDICATION
     Dosage: UNK
     Route: 065
     Dates: start: 20111221
  2. ACETAMINOPHEN [Concomitant]
  3. EPANUTIN                           /00017401/ [Concomitant]
     Dosage: UNK
     Dates: start: 20111213
  4. OMEPRAZOLE [Concomitant]
     Dosage: UNK
     Dates: start: 20111207
  5. PHENOXYMETHYLPENICILLIN [Concomitant]
     Dosage: UNK
     Dates: start: 20111208
  6. MORPHINE SULFATE [Suspect]
     Dosage: UNK
     Route: 065
     Dates: start: 20111207, end: 20111207
  7. DOCUSATE SODIUM [Concomitant]
     Dosage: UNK
     Dates: start: 20111213
  8. FENTANYL [Concomitant]
     Dosage: UNK
     Dates: start: 20111215

REACTIONS (1)
  - DYSPNOEA [None]
